FAERS Safety Report 10830397 (Version 2)
Quarter: 2015Q1

REPORT INFORMATION
  Report Type: Spontaneous
  Country: US (occurrence: US)
  Receive Date: 20150219
  Receipt Date: 20150331
  Transmission Date: 20150721
  Serious: No
  Sender: FDA-Public Use
  Company Number: US-PFIZER INC-2015061144

PATIENT
  Age: 72 Year
  Sex: Male

DRUGS (5)
  1. CARVEDILOL. [Concomitant]
     Active Substance: CARVEDILOL
     Indication: BLOOD PRESSURE
     Dosage: 25 MG, 1X/DAY
  2. VITAMINS NOS [Concomitant]
     Active Substance: VITAMINS
     Indication: RENAL CANCER
     Dosage: 1 DF, 1X/DAY
  3. SODIUM BICARBONATE. [Concomitant]
     Active Substance: SODIUM BICARBONATE
     Indication: BLOOD PRESSURE
     Dosage: UNK, 1X/DAY
  4. DIPHENOXYLATE ATROPINE [Concomitant]
     Indication: DIARRHOEA
     Dosage: UNK, AS NEEDED
  5. INLYTA [Suspect]
     Active Substance: AXITINIB
     Indication: RENAL CANCER
     Dosage: 10 MG, 2X/DAY

REACTIONS (5)
  - Diarrhoea [Not Recovered/Not Resolved]
  - Nausea [Unknown]
  - Feeling abnormal [Not Recovered/Not Resolved]
  - Constipation [Not Recovered/Not Resolved]
  - Decreased appetite [Not Recovered/Not Resolved]
